FAERS Safety Report 7706381-5 (Version None)
Quarter: 2011Q3

REPORT INFORMATION
  Report Type: 
  Country: None (occurrence: None)
  Receive Date: 20110824
  Receipt Date: 20110820
  Transmission Date: 20111222
  Serious: Yes (Hospitalization)
  Sender: FDA-Public Use
  Company Number: JP-BRACCO-005142

PATIENT
  Age: 57 Year
  Sex: Female
  Weight: 65 kg

DRUGS (12)
  1. GOODMIN [Concomitant]
  2. PAXIL [Concomitant]
  3. MEILAX [Concomitant]
  4. IOPAMIDOL [Suspect]
     Indication: BREAST CANCER
     Route: 041
     Dates: start: 20110516, end: 20110516
  5. PURSENNID [Concomitant]
  6. FLUNITRAZEPAM [Concomitant]
  7. RESTAMIN [Concomitant]
  8. CLOTIAZEPAM [Concomitant]
  9. TENORMIN [Concomitant]
  10. SUNRYTHM [Concomitant]
  11. SOLU-CORTEF [Concomitant]
  12. IOPAMIDOL [Suspect]
     Indication: COMPUTERISED TOMOGRAM
     Route: 041
     Dates: start: 20110509, end: 20110509

REACTIONS (1)
  - ERYTHEMA [None]
